FAERS Safety Report 8320813-3 (Version None)
Quarter: 2012Q2

REPORT INFORMATION
  Report Type: 
  Country: None (occurrence: None)
  Receive Date: 20120430
  Receipt Date: 20120417
  Transmission Date: 20120825
  Serious: Yes (Hospitalization)
  Sender: FDA-Public Use
  Company Number: PHHY2012YE034522

PATIENT
  Age: 8 Month
  Sex: Male

DRUGS (17)
  1. CYCLOSPORINE [Suspect]
     Indication: PROPHYLAXIS AGAINST GRAFT VERSUS HOST DISEASE
     Dosage: 2.5 MG/KG, BID (STARTED ON DAY 1, TARGET LEVEL 50-100 NG/ ML)
     Route: 042
  2. IMMUNE GLOBULIN (HUMAN) [Concomitant]
     Dosage: 0.5 G/KG, WEEKLY
  3. DEXAMETHASONE [Concomitant]
     Dosage: 0.5 MG/DAY
  4. SULFAMETHOXYPYRAZINE/TRIMETHOPRIM [Concomitant]
     Dosage: 10 MG/KG/DAY
  5. STEROIDS NOS [Concomitant]
     Dosage: 2 MG/KG/DAY
     Route: 048
  6. ISONIAZID [Concomitant]
     Dosage: 10 MG/KG, UNK
  7. IMMUNE GLOBULIN (HUMAN) [Concomitant]
     Dosage: 2 G/KG, QD
  8. FLUDARABINE PHOSPHATE [Concomitant]
     Dosage: 30 MG/M2/DAY -6 TO -2
  9. STEROIDS NOS [Concomitant]
     Indication: GRAFT VERSUS HOST DISEASE
     Dosage: 1 MG/KG/DAY
  10. TACROLIMUS [Concomitant]
     Dosage: UNK UKN, UNK
  11. ACYCLOVIR [Concomitant]
     Dosage: 1500 MG/M2/DAY
  12. ETHAMBUTOL HYDROCHLORIDE [Concomitant]
     Dosage: 15 MG/KG, UNK
  13. ANTI-THYMOCYTE GLOBULIN NOS [Concomitant]
     Indication: GRAFT VERSUS HOST DISEASE
     Dosage: 2.5 MG/KG/DAY -6 TO -3
  14. FLUCONAZOLE [Concomitant]
     Dosage: 6 MG/KG/DAY
  15. RIFAMPICIN [Concomitant]
     Dosage: 20 MG/KG, UNK
  16. CIPROFLOXACIN [Concomitant]
     Dosage: 22.5 MG/KG/DAY
  17. CLARITHROMYCIN [Concomitant]
     Dosage: 15 MG/KG/DAY

REACTIONS (11)
  - PYREXIA [None]
  - ALANINE AMINOTRANSFERASE INCREASED [None]
  - ACUTE GRAFT VERSUS HOST DISEASE IN SKIN [None]
  - RASH ERYTHEMATOUS [None]
  - ASPARTATE AMINOTRANSFERASE INCREASED [None]
  - GRAFT VERSUS HOST DISEASE [None]
  - PALLOR [None]
  - BACILLUS INFECTION [None]
  - LYMPHADENITIS [None]
  - AUTOIMMUNE PANCYTOPENIA [None]
  - GRAFT VERSUS HOST DISEASE IN LIVER [None]
